FAERS Safety Report 14142123 (Version 1)
Quarter: 2017Q4

REPORT INFORMATION
  Report Type: Spontaneous
  Country: DE (occurrence: DE)
  Receive Date: 20171030
  Receipt Date: 20171030
  Transmission Date: 20180321
  Serious: Yes (Other)
  Sender: FDA-Public Use
  Company Number: DE-PFIZER INC-2017455489

PATIENT
  Age: 55 Year
  Sex: Female

DRUGS (4)
  1. FULVESTRANT. [Suspect]
     Active Substance: FULVESTRANT
     Indication: BREAST CANCER METASTATIC
     Dosage: 125 MG, UNK
     Dates: start: 2017, end: 2017
  2. FULVESTRANT. [Suspect]
     Active Substance: FULVESTRANT
     Dosage: 100 MG, UNK
     Dates: start: 2017
  3. IBRANCE [Suspect]
     Active Substance: PALBOCICLIB
     Indication: BREAST CANCER METASTATIC
     Dosage: 125 MG, 1X/DAY
     Dates: start: 201702, end: 201705
  4. IBRANCE [Suspect]
     Active Substance: PALBOCICLIB
     Dosage: 100 MG, 1X/DAY
     Dates: start: 201705

REACTIONS (12)
  - Headache [Unknown]
  - Respiratory tract infection [Unknown]
  - Pyrexia [Not Recovered/Not Resolved]
  - Ear pain [Not Recovered/Not Resolved]
  - Laryngitis [Unknown]
  - Neoplasm progression [Unknown]
  - Dizziness [Unknown]
  - Muscle spasms [Unknown]
  - Rhinitis [Not Recovered/Not Resolved]
  - Tachycardia [Not Recovered/Not Resolved]
  - C-reactive protein increased [Unknown]
  - Neutrophil count decreased [Unknown]

NARRATIVE: CASE EVENT DATE: 2017
